FAERS Safety Report 5298982-1 (Version None)
Quarter: 2007Q2

REPORT INFORMATION
  Report Type: 
  Country: None (occurrence: None)
  Receive Date: 20070417
  Receipt Date: 20070406
  Transmission Date: 20071010
  Serious: Yes (Death, Hospitalization)
  Sender: FDA-Public Use
  Company Number: US-AMGEN-US211217

PATIENT
  Sex: Female
  Weight: 113.5 kg

DRUGS (20)
  1. PROCRIT [Suspect]
     Indication: RENAL FAILURE CHRONIC
     Route: 058
     Dates: start: 20070129, end: 20070201
  2. INDOCIN [Concomitant]
     Dates: end: 20070207
  3. OXYGEN [Concomitant]
  4. LOMOTIL [Concomitant]
  5. MULTIVIT [Concomitant]
  6. HYDROCHLOROTHIAZIDE [Concomitant]
     Route: 048
  7. TRAZODONE HCL [Concomitant]
     Route: 048
  8. EFFEXOR [Concomitant]
     Route: 048
  9. NITROGLYCERIN [Concomitant]
  10. AMITRIPTYLINE HCL [Concomitant]
     Route: 048
  11. FUROSEMIDE [Concomitant]
     Route: 048
  12. ALPRAZOLAM [Concomitant]
     Route: 048
  13. GLIMEPIRIDE [Concomitant]
     Route: 048
  14. ALLEGRA [Concomitant]
     Route: 048
  15. METOPROLOL SUCCINATE [Concomitant]
     Route: 048
  16. CIPROFLOXACIN [Concomitant]
  17. PROMETHAZINE [Concomitant]
     Route: 048
  18. POTASSIUM CHLORIDE [Concomitant]
     Route: 048
  19. METRONIDAZOLE [Concomitant]
     Route: 048
  20. COUGH SYRUP [Concomitant]

REACTIONS (5)
  - AGGRESSION [None]
  - DEATH [None]
  - DISORIENTATION [None]
  - DYSARTHRIA [None]
  - GOUT [None]
